FAERS Safety Report 18793562 (Version 1)
Quarter: 2021Q1

REPORT INFORMATION
  Report Type: Spontaneous
  Country: US (occurrence: US)
  Receive Date: 20210127
  Receipt Date: 20210127
  Transmission Date: 20210419
  Serious: Yes (Life-Threatening, Other)
  Sender: FDA-Public Use
  Company Number: None

PATIENT
  Age: 72 Year
  Sex: Male
  Weight: 101.25 kg

DRUGS (2)
  1. RMFLEX [Suspect]
     Active Substance: DIETARY SUPPLEMENT
     Indication: ARTHRALGIA
     Dosage: ?          QUANTITY:1 CAPSULE(S);?
     Route: 048
     Dates: start: 20210126, end: 20210126
  2. RMFLEX [Suspect]
     Active Substance: DIETARY SUPPLEMENT
     Indication: NEURALGIA
     Dosage: ?          QUANTITY:1 CAPSULE(S);?
     Route: 048
     Dates: start: 20210126, end: 20210126

REACTIONS (10)
  - Pulse abnormal [None]
  - Somnolence [None]
  - Pruritus [None]
  - Blood pressure decreased [None]
  - Product formulation issue [None]
  - Hyperhidrosis [None]
  - Vision blurred [None]
  - Drug hypersensitivity [None]
  - Dizziness [None]
  - Confusional state [None]

NARRATIVE: CASE EVENT DATE: 20210126
